FAERS Safety Report 7505188-1 (Version None)
Quarter: 2011Q2

REPORT INFORMATION
  Report Type: 
  Country: None (occurrence: None)
  Receive Date: 20110517
  Receipt Date: 20110511
  Transmission Date: 20111010
  Serious: Yes (Hospitalization, Other)
  Sender: FDA-Public Use
  Company Number: 2009SP020359

PATIENT
  Age: 43 Year
  Sex: Female
  Weight: 78.4723 kg

DRUGS (11)
  1. PRILOSEC [Concomitant]
  2. CELEBREX [Concomitant]
  3. MOTRIN [Concomitant]
  4. MOBIC [Concomitant]
  5. PREVACID [Concomitant]
  6. PHENTERMINE HCL [Concomitant]
  7. TYLENOL-500 [Concomitant]
  8. MOTRIN [Concomitant]
  9. TYLENOL-500 [Concomitant]
  10. NUVARING [Suspect]
     Indication: PRODUCT USED FOR UNKNOWN INDICATION
     Dates: start: 20050201, end: 20060401
  11. ULTRAM [Concomitant]

REACTIONS (18)
  - SUPERIOR SAGITTAL SINUS THROMBOSIS [None]
  - VENOUS THROMBOSIS LIMB [None]
  - INFLAMMATION [None]
  - OTITIS MEDIA [None]
  - PHLEBITIS [None]
  - INFUSION SITE EXTRAVASATION [None]
  - MELANOCYTIC NAEVUS [None]
  - IATROGENIC INJURY [None]
  - SQUAMOUS CELL CARCINOMA OF SKIN [None]
  - HYPERCOAGULATION [None]
  - EPISCLERITIS [None]
  - HIATUS HERNIA [None]
  - PULMONARY EMBOLISM [None]
  - LYMPHADENOPATHY [None]
  - DISEASE RECURRENCE [None]
  - HAEMORRHOIDS [None]
  - SEBORRHOEIC KERATOSIS [None]
  - CEREBRAL VENOUS THROMBOSIS [None]
